FAERS Safety Report 24436652 (Version 1)
Quarter: 2024Q4

REPORT INFORMATION
  Report Type: Report from Study
  Country: PK (occurrence: PK)
  Receive Date: 20241015
  Receipt Date: 20241015
  Transmission Date: 20250115
  Serious: Yes (Death)
  Sender: ROCHE
  Company Number: PK-ROCHE-10000051917

PATIENT
  Age: 57 Year
  Sex: Female

DRUGS (8)
  1. HERCEPTIN [Suspect]
     Active Substance: TRASTUZUMAB
     Indication: Breast cancer metastatic
     Route: 058
     Dates: start: 20230525, end: 20240920
  2. HERCEPTIN [Suspect]
     Active Substance: TRASTUZUMAB
     Route: 058
  3. HERCEPTIN [Suspect]
     Active Substance: TRASTUZUMAB
     Route: 058
  4. HERCEPTIN [Suspect]
     Active Substance: TRASTUZUMAB
     Route: 058
  5. HERCEPTIN [Suspect]
     Active Substance: TRASTUZUMAB
     Route: 058
  6. HERCEPTIN [Suspect]
     Active Substance: TRASTUZUMAB
     Route: 058
  7. HERCEPTIN [Suspect]
     Active Substance: TRASTUZUMAB
     Route: 058
  8. HERCEPTIN [Suspect]
     Active Substance: TRASTUZUMAB
     Route: 058
     Dates: start: 20210607, end: 20241006

REACTIONS (2)
  - Pyrexia [Unknown]
  - Death [Fatal]

NARRATIVE: CASE EVENT DATE: 20240807
